FAERS Safety Report 10379998 (Version 2)
Quarter: 2014Q3

REPORT INFORMATION
  Report Type: Report from Study
  Country: DE (occurrence: DE)
  Receive Date: 20140813
  Receipt Date: 20140813
  Transmission Date: 20150326
  Serious: Yes (Hospitalization)
  Sender: FDA-Public Use
  Company Number: DE-AMGEN-DEUCT2014051497

PATIENT
  Age: 74 Year
  Sex: Female
  Weight: 98 kg

DRUGS (5)
  1. ETANERCEPT [Suspect]
     Active Substance: ETANERCEPT
     Indication: PRODUCT USED FOR UNKNOWN INDICATION
     Dosage: 50 MG, WEEKLY
     Route: 065
     Dates: start: 20130722
  2. PANTOPRAZOLE [Concomitant]
     Active Substance: PANTOPRAZOLE SODIUM
     Dosage: 40 MG, DAILY
  3. TORASEMIDE [Concomitant]
     Active Substance: TORSEMIDE
     Dosage: 10 MG, DAILY
  4. INSULIN [Concomitant]
     Active Substance: INSULIN NOS
     Dosage: UNK
  5. PREDNISOLON                        /00016201/ [Concomitant]
     Active Substance: PREDNISOLONE
     Dosage: UNK

REACTIONS (1)
  - Empyema [Recovering/Resolving]

NARRATIVE: CASE EVENT DATE: 20140426
